FAERS Safety Report 9882794 (Version 1)
Quarter: 2014Q1

REPORT INFORMATION
  Report Type: Report from Study
  Country: DE (occurrence: DE)
  Receive Date: 20140207
  Receipt Date: 20140207
  Transmission Date: 20141002
  Serious: Yes (Life-Threatening, Disabling)
  Sender: FDA-Public Use
  Company Number: DE-ABBVIE-14P-062-1199193-00

PATIENT
  Age: 59 Year
  Sex: Female

DRUGS (2)
  1. HUMIRA [Suspect]
     Indication: RHEUMATOID ARTHRITIS
     Route: 058
     Dates: start: 200901, end: 201204
  2. METHOTREXATE [Suspect]
     Indication: RHEUMATOID ARTHRITIS

REACTIONS (6)
  - Spondylitis [Recovered/Resolved]
  - Abscess [Recovered/Resolved]
  - Sepsis [Unknown]
  - Quadriparesis [Unknown]
  - Myelopathy [Unknown]
  - Paresis [Unknown]
